FAERS Safety Report 5061774-2 (Version None)
Quarter: 2006Q3

REPORT INFORMATION
  Report Type: 
  Country: None (occurrence: None)
  Receive Date: 20060726
  Receipt Date: 20060516
  Transmission Date: 20061208
  Serious: No
  Sender: FDA-Public Use
  Company Number: S2006US08343

PATIENT
  Age: 79 Year
  Sex: Female

DRUGS (3)
  1. TRIAMTERENE AND HYDROCHLOROTHIAZIDE [Suspect]
     Route: 048
  2. CLONIDINE [Concomitant]
  3. DILTIAZEM HCL [Concomitant]

REACTIONS (1)
  - BLOOD PRESSURE INCREASED [None]
